FAERS Safety Report 20885038 (Version 3)
Quarter: 2022Q3

REPORT INFORMATION
  Report Type: Spontaneous
  Country: CO (occurrence: CO)
  Receive Date: 20220527
  Receipt Date: 20220719
  Transmission Date: 20221026
  Serious: No
  Sender: FDA-Public Use
  Company Number: CO-PFIZER INC-202200726565

PATIENT
  Age: 14 Year
  Sex: Male

DRUGS (1)
  1. GENOTROPIN [Suspect]
     Active Substance: SOMATROPIN
     Dosage: UNK

REACTIONS (6)
  - Device difficult to use [Unknown]
  - Device use issue [Unknown]
  - Expired device used [Unknown]
  - Device physical property issue [Unknown]
  - Device information output issue [Unknown]
  - Device leakage [Unknown]
